FAERS Safety Report 19472595 (Version 1)
Quarter: 2021Q2

REPORT INFORMATION
  Report Type: Spontaneous
  Country: ES (occurrence: ES)
  Receive Date: 20210629
  Receipt Date: 20210629
  Transmission Date: 20210717
  Serious: Yes (Other)
  Sender: FDA-Public Use
  Company Number: ES-ACCORD-229578

PATIENT
  Age: 82 Year
  Sex: Female

DRUGS (10)
  1. AMLODIPINE [Suspect]
     Active Substance: AMLODIPINE BESYLATE
     Indication: HYPERTENSION
     Dosage: 1/24
     Route: 048
     Dates: start: 20210504
  2. BETMIGA [Concomitant]
     Active Substance: MIRABEGRON
  3. ATORVASTATIN [Concomitant]
     Active Substance: ATORVASTATIN
  4. LEXATIN [Concomitant]
  5. EUTIROX [Concomitant]
     Active Substance: LEVOTHYROXINE SODIUM
  6. NITROPLAST [Concomitant]
     Active Substance: NITROGLYCERIN
  7. CLOPIDOGREL [Concomitant]
     Active Substance: CLOPIDOGREL BISULFATE
  8. RAMIPRIL. [Concomitant]
     Active Substance: RAMIPRIL
  9. ORFIDAL [Concomitant]
     Active Substance: LORAZEPAM
  10. NEXIUM [Concomitant]
     Active Substance: ESOMEPRAZOLE MAGNESIUM

REACTIONS (2)
  - Oedema peripheral [Unknown]
  - Urinary retention [Unknown]

NARRATIVE: CASE EVENT DATE: 20210510
